FAERS Safety Report 17692091 (Version 1)
Quarter: 2020Q2

REPORT INFORMATION
  Report Type: Spontaneous
  Country: US (occurrence: US)
  Receive Date: 20200421
  Receipt Date: 20200421
  Transmission Date: 20200714
  Serious: Yes (Death, Life-Threatening)
  Sender: FDA-Public Use
  Company Number: None

PATIENT
  Age: 56 Year
  Sex: Male
  Weight: 68.85 kg

DRUGS (16)
  1. VITAMIN C [Concomitant]
     Active Substance: ASCORBIC ACID
  2. GABAPENTIN. [Concomitant]
     Active Substance: GABAPENTIN
  3. OMEPRAZOLE. [Concomitant]
     Active Substance: OMEPRAZOLE
  4. ZOLOFT [Concomitant]
     Active Substance: SERTRALINE HYDROCHLORIDE
  5. LISINOPRIL. [Concomitant]
     Active Substance: LISINOPRIL
  6. HCTZ [Concomitant]
     Active Substance: HYDROCHLOROTHIAZIDE
  7. ASPIRIN 81 [Concomitant]
     Active Substance: ASPIRIN
  8. CORESEDIN [Concomitant]
  9. FLUTICASONE-SALMET [Concomitant]
  10. BUPROPION XL [Suspect]
     Active Substance: BUPROPION
     Indication: PRODUCT USED FOR UNKNOWN INDICATION
     Dosage: ?          QUANTITY:1 TABLET(S);?
     Route: 048
     Dates: start: 20200304, end: 20200312
  11. ALBUTERNOL INHALER [Concomitant]
  12. ONE-A-DAY FOR MEN [Concomitant]
  13. XANAX [Concomitant]
     Active Substance: ALPRAZOLAM
  14. IRON [Concomitant]
     Active Substance: IRON
  15. POTASSIUM [Concomitant]
     Active Substance: POTASSIUM
  16. LASIX [Concomitant]
     Active Substance: FUROSEMIDE

REACTIONS (8)
  - Insomnia [None]
  - Hallucination, visual [None]
  - Myocardial infarction [None]
  - Speech disorder [None]
  - Dizziness [None]
  - Muscular weakness [None]
  - Near death experience [None]
  - Neck pain [None]

NARRATIVE: CASE EVENT DATE: 20200312
